FAERS Safety Report 21199963 (Version 1)
Quarter: 2022Q3

REPORT INFORMATION
  Report Type: Spontaneous
  Country: US (occurrence: None)
  Receive Date: 20220810
  Receipt Date: 20220810
  Transmission Date: 20221027
  Serious: Yes (Disabling)
  Sender: FDA-Public Use
  Company Number: None

PATIENT
  Age: 30 Year
  Sex: Female
  Weight: 60.33 kg

DRUGS (2)
  1. PARAGARD T 380A [Suspect]
     Active Substance: COPPER
  2. UNSPECIFIED INGREDIENT [Suspect]
     Active Substance: UNSPECIFIED INGREDIENT

REACTIONS (6)
  - Uterine pain [None]
  - Endometriosis [None]
  - Adenomyosis [None]
  - Hair metal test abnormal [None]
  - Eye colour change [None]
  - Hepato-lenticular degeneration [None]

NARRATIVE: CASE EVENT DATE: 20160104
